FAERS Safety Report 9975964 (Version 1)
Quarter: 2014Q1

REPORT INFORMATION
  Report Type: Spontaneous
  Country: FR (occurrence: FR)
  Receive Date: 20140306
  Receipt Date: 20140306
  Transmission Date: 20141002
  Serious: Yes (Hospitalization)
  Sender: FDA-Public Use
  Company Number: FR-ABBVIE-14P-056-1206612-00

PATIENT
  Age: 78 Year
  Sex: Female

DRUGS (9)
  1. HUMIRA [Suspect]
     Indication: PSORIATIC ARTHROPATHY
     Dates: start: 2012, end: 201305
  2. LEVOTHYROX [Concomitant]
     Indication: HYPOTHYROIDISM
     Route: 048
  3. SULFARLEM [Concomitant]
     Indication: SJOGREN^S SYNDROME
     Route: 048
     Dates: start: 2013
  4. ADENURIC [Concomitant]
     Indication: HYPERURICAEMIA
     Route: 048
     Dates: start: 2013
  5. DOLIPRANE [Concomitant]
     Indication: PAIN
     Route: 048
     Dates: start: 2013
  6. OGAST [Concomitant]
     Indication: PRODUCT USED FOR UNKNOWN INDICATION
     Route: 048
     Dates: start: 201310
  7. ENBREL [Concomitant]
     Indication: PSORIATIC ARTHROPATHY
     Dates: start: 201309
  8. SEROPLEX [Concomitant]
     Indication: DEPRESSION
     Route: 048
     Dates: start: 201305
  9. LAMALINE [Concomitant]
     Indication: PAIN
     Route: 048
     Dates: start: 2013

REACTIONS (2)
  - Depression [Not Recovered/Not Resolved]
  - Memory impairment [Recovering/Resolving]
